FAERS Safety Report 8962474 (Version 1)
Quarter: 2012Q4

REPORT INFORMATION
  Report Type: 
  Country: BR (occurrence: BR)
  Receive Date: 20121213
  Receipt Date: 20121213
  Transmission Date: 20130627
  Serious: Yes (Other)
  Sender: FDA-Public Use
  Company Number: BR-PFIZER INC-2012313097

PATIENT
  Age: 65 Year
  Sex: Male

DRUGS (6)
  1. LIPITOR [Suspect]
     Dosage: 10 mg, UNK
     Dates: start: 2008
  2. LIPITOR [Suspect]
     Dosage: 20 mg, UNK
  3. ATENOLOL [Concomitant]
     Dosage: 25 mg, UNK
  4. CENTRUM SELECT [Concomitant]
  5. CORUS [Concomitant]
     Dosage: 25 mg, UNK
  6. DIURIX [Concomitant]
     Dosage: 100 mg, UNK

REACTIONS (1)
  - Coronary artery occlusion [Unknown]
